FAERS Safety Report 20280445 (Version 1)
Quarter: 2022Q1

REPORT INFORMATION
  Report Type: Spontaneous
  Country: US (occurrence: None)
  Receive Date: 20220101
  Receipt Date: 20220101
  Transmission Date: 20220423
  Serious: No
  Sender: FDA-Public Use
  Company Number: None

PATIENT
  Age: 49 Year
  Sex: Female
  Weight: 63 kg

DRUGS (1)
  1. HYDREA [Suspect]
     Active Substance: HYDROXYUREA
     Indication: Platelet count increased
     Dosage: FREQUENCY : TWICE A DAY;?
     Route: 048
     Dates: start: 20170116, end: 20170818

REACTIONS (6)
  - Pain in jaw [None]
  - Arthralgia [None]
  - Chest discomfort [None]
  - Memory impairment [None]
  - Dementia Alzheimer^s type [None]
  - Dementia [None]

NARRATIVE: CASE EVENT DATE: 20170301
